FAERS Safety Report 22656269 (Version 1)
Quarter: 2023Q2

REPORT INFORMATION
  Report Type: Spontaneous
  Country: US (occurrence: US)
  Receive Date: 20230629
  Receipt Date: 20230629
  Transmission Date: 20230722
  Serious: No
  Sender: FDA-Public Use
  Company Number: US-ELI_LILLY_AND_COMPANY-US202306017565

PATIENT
  Age: 73 Year
  Sex: Female

DRUGS (3)
  1. MOUNJARO [Suspect]
     Active Substance: TIRZEPATIDE
     Indication: Type 2 diabetes mellitus
     Dosage: 10 MG, UNKNOWN
     Route: 058
     Dates: start: 202302
  2. MOUNJARO [Suspect]
     Active Substance: TIRZEPATIDE
     Dosage: 10 MG, UNKNOWN
     Route: 058
  3. HYDROCODONE [Concomitant]
     Active Substance: HYDROCODONE
     Indication: Pain
     Dosage: UNK UNK, UNKNOWN
     Route: 065

REACTIONS (3)
  - Injection site erythema [Recovering/Resolving]
  - Injection site urticaria [Recovering/Resolving]
  - Injection site bruising [Unknown]

NARRATIVE: CASE EVENT DATE: 20230501
